FAERS Safety Report 17283920 (Version 1)
Quarter: 2020Q1

REPORT INFORMATION
  Report Type: Spontaneous
  Country: US (occurrence: US)
  Receive Date: 20200117
  Receipt Date: 20200117
  Transmission Date: 20200409
  Serious: No
  Sender: FDA-Public Use
  Company Number: US-GW PHARMA-202001USGW00116

PATIENT

DRUGS (3)
  1. EPIDIOLEX [Suspect]
     Active Substance: CANNABIDIOL
     Indication: LENNOX-GASTAUT SYNDROME
     Dosage: 360 MILLIGRAM, BID
     Route: 048
     Dates: start: 20181128
  2. FELBAMATE. [Suspect]
     Active Substance: FELBAMATE
     Dosage: DOSE CHANGED
     Route: 065
  3. FELBAMATE. [Suspect]
     Active Substance: FELBAMATE
     Indication: PRODUCT USED FOR UNKNOWN INDICATION
     Dosage: UNK
     Route: 065

REACTIONS (2)
  - Abnormal behaviour [Not Recovered/Not Resolved]
  - Tremor [Not Recovered/Not Resolved]
